FAERS Safety Report 22596778 (Version 2)
Quarter: 2024Q2

REPORT INFORMATION
  Report Type: Report from Study
  Country: DE (occurrence: DE)
  Receive Date: 20230613
  Receipt Date: 20240522
  Transmission Date: 20240716
  Serious: Yes (Hospitalization, Other)
  Sender: FDA-Public Use
  Company Number: DE-SA-2023SA174392

PATIENT
  Age: 59 Year
  Sex: Female

DRUGS (22)
  1. DEXAMETHASONE [Suspect]
     Active Substance: DEXAMETHASONE
     Indication: Plasma cell myeloma refractory
     Dosage: 40 , OTHER ( 1,8,15,22 )
     Route: 065
     Dates: start: 20230123, end: 20230207
  2. DEXAMETHASONE [Suspect]
     Active Substance: DEXAMETHASONE
     Dosage: 40 MG, OTHER ( ON D1 OF ISATUXIMAB )
     Route: 065
     Dates: start: 20230404, end: 20230421
  3. DEXAMETHASONE [Suspect]
     Active Substance: DEXAMETHASONE
     Dosage: 40 MG, OTHER (1,8,15,22 )
     Route: 065
     Dates: start: 20221215, end: 20230109
  4. DEXAMETHASONE [Suspect]
     Active Substance: DEXAMETHASONE
     Dosage: 20 MG, OTHER ( ON D1 OF ISATUXIMAB )
     Route: 065
     Dates: start: 20230221, end: 20230307
  5. DEXAMETHASONE [Suspect]
     Active Substance: DEXAMETHASONE
     Dosage: 40 MG, BI-WEEKLY
     Route: 065
     Dates: start: 20230502, end: 20230502
  6. POMALIDOMIDE [Suspect]
     Active Substance: POMALIDOMIDE
     Indication: Plasma cell myeloma refractory
     Dosage: 4 MG, D 1-21,
     Route: 065
     Dates: start: 20230123, end: 20230220
  7. POMALIDOMIDE [Suspect]
     Active Substance: POMALIDOMIDE
     Dosage: 4 MG, QD
     Route: 065
     Dates: start: 20221215, end: 20230109
  8. POMALIDOMIDE [Suspect]
     Active Substance: POMALIDOMIDE
     Dosage: 4 MG, 21 DAY ON, 7 DAY FF
     Route: 065
     Dates: start: 20230221, end: 20230313
  9. POMALIDOMIDE [Suspect]
     Active Substance: POMALIDOMIDE
     Dosage: 4 MG, 21 D ON, 7 DAY OFF
     Route: 065
     Dates: start: 20230404, end: 20230421
  10. POMALIDOMIDE [Suspect]
     Active Substance: POMALIDOMIDE
     Dosage: 21 D ON, 7 DAY OFF
     Route: 065
     Dates: start: 20230502, end: 20230502
  11. ISATUXIMAB [Suspect]
     Active Substance: ISATUXIMAB
     Indication: Plasma cell myeloma refractory
     Dosage: 10 MG/KG, BI-WEEKLY
     Route: 065
     Dates: start: 20230404, end: 20230421
  12. ISATUXIMAB [Suspect]
     Active Substance: ISATUXIMAB
     Dosage: 10 MG/KG, BI-WEEKLY
     Route: 065
     Dates: start: 20230502, end: 20230502
  13. ISATUXIMAB [Suspect]
     Active Substance: ISATUXIMAB
     Dosage: 550 MG, QW ( WEEKLY )
     Route: 065
     Dates: start: 20221215, end: 20230110
  14. ISATUXIMAB [Suspect]
     Active Substance: ISATUXIMAB
     Dosage: 10 MG/KG, BI-WEEKLY
     Route: 065
     Dates: start: 20230221, end: 20230307
  15. ISATUXIMAB [Suspect]
     Active Substance: ISATUXIMAB
     Dosage: 10 MG/KG, BI-WEEKLY, DRUG LAST ADMINISTRATION:07/FEB/2023
     Route: 065
     Dates: start: 20230123
  16. ACETAMINOPHEN [Concomitant]
     Active Substance: ACETAMINOPHEN
     Indication: Premedication
     Dosage: UNK., PRN
     Dates: start: 20230110, end: 20230502
  17. ACYCLOVIR [Concomitant]
     Active Substance: ACYCLOVIR
     Indication: Prophylaxis
  18. CHLORPHENIRAMINE MALEATE [Concomitant]
     Active Substance: CHLORPHENIRAMINE MALEATE
     Indication: Premedication
     Dosage: UNK UNK, PRN, ANTIHISTAMINICS,
     Dates: start: 20230110, end: 20230502
  19. FILGRASTIM [Concomitant]
     Active Substance: FILGRASTIM
     Indication: Premedication
     Dosage: UNK, PRN
     Dates: start: 20230221, end: 20230502
  20. ELIQUIS [Concomitant]
     Active Substance: APIXABAN
     Indication: Product used for unknown indication
     Dosage: UNK
  21. CITALOPRAM [Concomitant]
     Active Substance: CITALOPRAM\CITALOPRAM HYDROBROMIDE
     Indication: Product used for unknown indication
     Dosage: UNK
     Dates: start: 20230313, end: 20230320
  22. ONDANSETRON [Concomitant]
     Active Substance: ONDANSETRON
     Indication: Prophylaxis
     Dosage: UNK
     Dates: start: 20230109, end: 20230502

REACTIONS (4)
  - Pneumonitis [Recovered/Resolved]
  - Leukopenia [Recovered/Resolved]
  - Arthralgia [Recovered/Resolved]
  - Constipation [Recovered/Resolved]

NARRATIVE: CASE EVENT DATE: 20230123
